FAERS Safety Report 4604358-X (Version None)
Quarter: 2005Q1

REPORT INFORMATION
  Report Type: 
  Country: None (occurrence: None)
  Receive Date: 20050309
  Receipt Date: 20050309
  Transmission Date: 20050727
  Serious: Yes (Hospitalization)
  Sender: FDA-Public Use
  Company Number: None

PATIENT
  Age: 6 Month
  Sex: Female

DRUGS (3)
  1. RILUZOLE [Suspect]
     Indication: SPINAL MUSCULAR ATROPHY
     Dosage: 35 MG DAILY ORAL
     Route: 048
     Dates: start: 20050221, end: 20050224
  2. NEBULIZER TREATMENT [Concomitant]
  3. OMNICEF [Concomitant]

REACTIONS (2)
  - EAR INFECTION [None]
  - PNEUMONIA [None]
